FAERS Safety Report 7018522-6 (Version None)
Quarter: 2010Q3

REPORT INFORMATION
  Report Type: 
  Country: None (occurrence: None)
  Receive Date: 20100928
  Receipt Date: 20100916
  Transmission Date: 20110219
  Serious: Yes (Hospitalization)
  Sender: FDA-Public Use
  Company Number: BR-MEDIMMUNE-MEDI-0011550

PATIENT
  Sex: Male
  Weight: 5.5 kg

DRUGS (2)
  1. SYNAGIS [Suspect]
     Route: 030
     Dates: start: 20100507
  2. SYNAGIS [Suspect]
     Indication: BRONCHOPULMONARY DYSPLASIA

REACTIONS (5)
  - BRONCHIOLITIS [None]
  - COUGH [None]
  - FATIGUE [None]
  - INCREASED BRONCHIAL SECRETION [None]
  - PYREXIA [None]
